FAERS Safety Report 18760530 (Version 1)
Quarter: 2021Q1

REPORT INFORMATION
  Report Type: Spontaneous
  Country: US (occurrence: US)
  Receive Date: 20210119
  Receipt Date: 20210119
  Transmission Date: 20210419
  Serious: Yes (Death)
  Sender: FDA-Public Use
  Company Number: US-PFIZER INC-2020490868

PATIENT
  Age: 29 Year
  Sex: Male

DRUGS (1)
  1. LORBRENA [Suspect]
     Active Substance: LORLATINIB
     Indication: CONNECTIVE TISSUE NEOPLASM
     Dosage: 100 MG

REACTIONS (2)
  - Off label use [Unknown]
  - Neoplasm progression [Fatal]

NARRATIVE: CASE EVENT DATE: 202012
